FAERS Safety Report 19100221 (Version 2)
Quarter: 2021Q2

REPORT INFORMATION
  Report Type: Spontaneous
  Country: US (occurrence: US)
  Receive Date: 20210407
  Receipt Date: 20210521
  Transmission Date: 20210717
  Serious: Yes (Life-Threatening, Hospitalization, Other)
  Sender: FDA-Public Use
  Company Number: US-ALKEM LABORATORIES LIMITED-US-ALKEM-2021-01641

PATIENT
  Age: 38 Year
  Sex: Female

DRUGS (6)
  1. QUETIAPINE FUMARATE. [Suspect]
     Active Substance: QUETIAPINE FUMARATE
     Indication: INSOMNIA
     Dosage: 1 DOSAGE FORM (AS NECESSARY)
     Route: 048
  2. ZOLPIDEM [Suspect]
     Active Substance: ZOLPIDEM TARTRATE
     Dosage: 10 MILLIGRAM,QD
     Route: 065
  3. LORAZEPAM. [Concomitant]
     Active Substance: LORAZEPAM
     Indication: ANXIETY
     Dosage: 0.5 MILLIGRAM (AS NECESSARY)
     Route: 065
  4. QUETIAPINE FUMARATE. [Suspect]
     Active Substance: QUETIAPINE FUMARATE
     Dosage: 60 DOSAGE FORM (1 TOTAL)
     Route: 065
  5. DEXTROAMPHETAMINE, AMPHETAMINE [Concomitant]
     Indication: ATTENTION DEFICIT HYPERACTIVITY DISORDER
     Dosage: 30 MILLIGRAM, BID
     Route: 065
  6. ZOLPIDEM [Suspect]
     Active Substance: ZOLPIDEM TARTRATE
     Indication: INSOMNIA
     Dosage: 5 MILLIGRAM, QD
     Route: 065

REACTIONS (10)
  - Loss of consciousness [Recovered/Resolved]
  - Mood altered [Recovered/Resolved]
  - Intentional overdose [Recovered/Resolved]
  - Suicide attempt [Unknown]
  - Fatigue [Recovered/Resolved]
  - Unresponsive to stimuli [Recovered/Resolved]
  - Behaviour disorder [Recovered/Resolved]
  - Suicidal ideation [Recovered/Resolved]
  - Somnolence [Unknown]
  - Respiratory depression [Recovered/Resolved]
